FAERS Safety Report 9395875 (Version 1)
Quarter: 2013Q3

REPORT INFORMATION
  Report Type: Spontaneous
  Country: NL (occurrence: None)
  Receive Date: 20130708
  Receipt Date: 20130708
  Transmission Date: 20140515
  Serious: Yes (Other)
  Sender: FDA-Public Use
  Company Number: AUR-APL-2013-05730

PATIENT
  Sex: Male

DRUGS (5)
  1. CLARITHROMYCIN [Suspect]
     Indication: BACTERIAL INFECTION
  2. AMILORIDE [Concomitant]
  3. SILVER SULFADIAZINE [Concomitant]
  4. FLUTICASONE [Concomitant]
  5. TIOTROPIUM [Concomitant]

REACTIONS (2)
  - Angioedema [None]
  - Rash [None]
